FAERS Safety Report 22335293 (Version 1)
Quarter: 2023Q2

REPORT INFORMATION
  Report Type: Other
  Country: US (occurrence: None)
  Receive Date: 20230518
  Receipt Date: 20230518
  Transmission Date: 20230722
  Serious: Yes (Other)
  Sender: FDA-Public Use
  Company Number: US-ROCHE-3329005

PATIENT
  Age: 78 Year
  Sex: Female

DRUGS (2)
  1. TOCILIZUMAB [Suspect]
     Active Substance: TOCILIZUMAB
     Indication: Giant cell arteritis
     Route: 058
  2. PREDNISONE [Concomitant]
     Active Substance: PREDNISONE

REACTIONS (1)
  - Cytomegalovirus chorioretinitis [Recovered/Resolved]
